FAERS Safety Report 12982542 (Version 1)
Quarter: 2016Q4

REPORT INFORMATION
  Report Type: Spontaneous
  Country: US (occurrence: US)
  Receive Date: 20161129
  Receipt Date: 20161129
  Transmission Date: 20170207
  Serious: Yes (Other)
  Sender: FDA-Public Use
  Company Number: US-PFIZER INC-2016547917

PATIENT
  Age: 65 Year
  Sex: Female
  Weight: 68.94 kg

DRUGS (1)
  1. XELJANZ [Suspect]
     Active Substance: TOFACITINIB CITRATE
     Dosage: 5 MG, 2X/DAY
     Route: 048
     Dates: end: 20161015

REACTIONS (4)
  - Gastrointestinal pain [Unknown]
  - Urinary tract infection [Unknown]
  - Diverticulitis [Unknown]
  - Haematochezia [Unknown]

NARRATIVE: CASE EVENT DATE: 20161029
